FAERS Safety Report 4676078-7 (Version None)
Quarter: 2005Q2

REPORT INFORMATION
  Report Type: 
  Country: None (occurrence: None)
  Receive Date: 20050527
  Receipt Date: 20050323
  Transmission Date: 20051028
  Serious: No
  Sender: FDA-Public Use
  Company Number: US-GLAXOSMITHKLINE-A0551026A

PATIENT
  Sex: Female

DRUGS (7)
  1. WELLBUTRIN XL [Suspect]
     Indication: DEPRESSION
     Dosage: 450MG PER DAY
     Route: 048
     Dates: start: 20040201
  2. STRATTERA [Concomitant]
  3. LEXAPRO [Concomitant]
  4. SYNTHROID [Concomitant]
  5. ALLERGY INJECTIONS [Concomitant]
  6. IRON SUPPLEMENT [Concomitant]
  7. WELLBUTRIN SR [Concomitant]

REACTIONS (1)
  - ACNE [None]
